FAERS Safety Report 19362827 (Version 4)
Quarter: 2021Q3

REPORT INFORMATION
  Report Type: Spontaneous
  Country: PL (occurrence: PL)
  Receive Date: 20210602
  Receipt Date: 20210821
  Transmission Date: 20211014
  Serious: Yes (Life-Threatening, Hospitalization)
  Sender: FDA-Public Use
  Company Number: PL-ALSI-2021000151

PATIENT
  Sex: Male
  Weight: 78 kg

DRUGS (22)
  1. PULMICORT TURBUHALER [Suspect]
     Active Substance: BUDESONIDE
     Route: 055
     Dates: start: 20210421, end: 20210514
  2. TOCILIZUMAB (TOCILIZUMAB) [Suspect]
     Active Substance: TOCILIZUMAB
     Route: 065
     Dates: start: 20210421, end: 20210514
  3. VITAMIN D3 K2 (COLECALCIFEROL, MENAQUINONE?7) [Concomitant]
  4. OXYGEN. [Suspect]
     Active Substance: OXYGEN
     Indication: COVID-19
     Route: 055
     Dates: end: 20210514
  5. DEXAVEN (DEXAMETHASONE SODIUM PHOSPHATE) [Suspect]
     Active Substance: DEXAMETHASONE SODIUM PHOSPHATE
     Route: 065
  6. METHOTREXATE. [Concomitant]
     Active Substance: METHOTREXATE
     Dates: end: 20210506
  7. BIOTRAKSON (CEFTRIAXONE SODIUM) [Suspect]
     Active Substance: CEFTRIAXONE SODIUM
     Route: 065
  8. LACIDOFIL (LACTOBACILLUS NOS) [Suspect]
     Active Substance: PROBIOTICS NOS
     Route: 048
     Dates: start: 20210414, end: 20210521
  9. CO BESPRES (HYDROCHLOROTHIAZIDE, VALSARTAN) [Concomitant]
     Dates: start: 20170628
  10. NACL (SODIUM CHLORIDE) [Suspect]
     Active Substance: SODIUM CHLORIDE
     Route: 065
  11. FLEGAMINA (BROMHEXINE HYDROCHLORIDE) [Suspect]
     Active Substance: BROMHEXINE HYDROCHLORIDE
     Route: 065
  12. NOLPAZA (PANTOPRAZOLE SODIUM SESQUIHYDRATE) [Concomitant]
     Active Substance: PANTOPRAZOLE SODIUM
  13. MAGNE B6 FORTE (MAGNESIUM CITRATE, PYRIDOXINE HYDROCHLORIDE) [Concomitant]
  14. FEBROFEN (KETOPROFEN) [Concomitant]
  15. SLOW MAG (MAGNESIUM) [Concomitant]
  16. FILGOTINIB [Suspect]
     Active Substance: FILGOTINIB
     Route: 048
     Dates: start: 20201228, end: 20210421
  17. ACIDUM FOLICUM (FOLIC ACID) [Concomitant]
  18. CLEXANE (ENOXAPARIN SODIUM) [Suspect]
     Active Substance: ENOXAPARIN SODIUM
     Route: 058
     Dates: start: 20210421, end: 20210514
  19. ELECTROLYTES NOS [Suspect]
     Active Substance: ELECTROLYTES NOS
     Dates: start: 20210421, end: 20210514
  20. ATROX (POLAND) (ATORVASTATIN CALCIUM) [Concomitant]
  21. VITAMINUM C (ASCORBIC ACID) [Concomitant]
  22. MENATRENONE (MENATETRENONE) [Concomitant]

REACTIONS (5)
  - Interstitial lung disease [Recovered/Resolved]
  - Pulmonary embolism [Not Recovered/Not Resolved]
  - Chronic respiratory failure [Not Recovered/Not Resolved]
  - COVID-19 [Recovered/Resolved]
  - Acute respiratory failure [Recovered/Resolved]

NARRATIVE: CASE EVENT DATE: 20210411
